FAERS Safety Report 8370477-8 (Version None)
Quarter: 2012Q2

REPORT INFORMATION
  Report Type: 
  Country: None (occurrence: None)
  Receive Date: 20120518
  Receipt Date: 20120509
  Transmission Date: 20120825
  Serious: Yes (Hospitalization, Other)
  Sender: FDA-Public Use
  Company Number: PHHY2011ZA84902

PATIENT
  Sex: Female

DRUGS (6)
  1. VALSARTAN  AND HYDROCHLOROTHIAZIDE [Suspect]
  2. METFORMIN HCL [Concomitant]
  3. LEVEMIR [Concomitant]
  4. WATER [Concomitant]
  5. LEVOTHYROXINE SODIUM [Concomitant]
     Dosage: 0.5 MG, PER DAY
  6. AMLODIPINE BESYLATE [Concomitant]
     Indication: HYPERTENSION
     Dosage: 10 MG, UNK

REACTIONS (2)
  - PNEUMONIA [None]
  - GLYCOSYLATED HAEMOGLOBIN INCREASED [None]
